FAERS Safety Report 5920425-2 (Version None)
Quarter: 2008Q4

REPORT INFORMATION
  Report Type: 
  Country: None (occurrence: None)
  Receive Date: 20081014
  Receipt Date: 20080930
  Transmission Date: 20090506
  Serious: Yes (Death, Hospitalization, Other)
  Sender: FDA-Public Use
  Company Number: 52988

PATIENT
  Age: 74 Year
  Sex: Male

DRUGS (1)
  1. CARBOPLATIN [Suspect]
     Indication: PLEURAL MESOTHELIOMA MALIGNANT

REACTIONS (4)
  - CARDIAC ARREST [None]
  - OLIGURIA [None]
  - PULMONARY OEDEMA [None]
  - TUMOUR LYSIS SYNDROME [None]
